FAERS Safety Report 6937526-2 (Version None)
Quarter: 2010Q3

REPORT INFORMATION
  Report Type: 
  Country: None (occurrence: None)
  Receive Date: 20100823
  Receipt Date: 20100812
  Transmission Date: 20110219
  Serious: Yes (Other)
  Sender: FDA-Public Use
  Company Number: DE-BAXTER-2010BH021687

PATIENT
  Age: 66 Year
  Sex: Female
  Weight: 65 kg

DRUGS (15)
  1. CYCLOPHOSPHAMIDE [Suspect]
     Indication: BREAST CANCER
     Route: 042
     Dates: start: 20100709, end: 20100709
  2. CYCLOPHOSPHAMIDE [Suspect]
     Route: 042
     Dates: start: 20100618, end: 20100618
  3. CYCLOPHOSPHAMIDE [Suspect]
     Route: 042
     Dates: start: 20100528, end: 20100528
  4. TAXOTERE [Suspect]
     Indication: BREAST CANCER
     Route: 042
     Dates: start: 20100709, end: 20100709
  5. TAXOTERE [Suspect]
     Route: 042
     Dates: start: 20100618, end: 20100618
  6. TAXOTERE [Suspect]
     Route: 042
     Dates: start: 20100528, end: 20100528
  7. BISOHEXAL [Concomitant]
     Indication: HYPERTENSION
     Route: 048
     Dates: start: 20040101
  8. ENALAPRIL MALEATE [Concomitant]
     Indication: HYPERTENSION
     Route: 048
     Dates: start: 20040101
  9. UROMITEXAN [Concomitant]
     Indication: CYSTITIS
     Route: 042
     Dates: start: 20100709, end: 20100709
  10. UROMITEXAN [Concomitant]
     Route: 048
     Dates: start: 20100709, end: 20100709
  11. FORTECORTIN [Concomitant]
     Indication: NAUSEA
     Route: 042
     Dates: start: 20100709, end: 20100709
  12. FORTECORTIN [Concomitant]
     Route: 048
     Dates: start: 20100709, end: 20100709
  13. NEULASTA [Concomitant]
     Indication: NEUTROPENIA
     Route: 058
     Dates: start: 20100709, end: 20100709
  14. NEULASTA [Concomitant]
     Route: 058
     Dates: start: 20100730, end: 20100730
  15. ENOXAPARIN SODIUM [Concomitant]
     Indication: THROMBOSIS PROPHYLAXIS
     Route: 058
     Dates: start: 20100802, end: 20100802

REACTIONS (1)
  - TREMOR [None]
